FAERS Safety Report 11279877 (Version 3)
Quarter: 2015Q3

REPORT INFORMATION
  Report Type: Spontaneous
  Country: US (occurrence: US)
  Receive Date: 20150717
  Receipt Date: 20150821
  Transmission Date: 20151125
  Serious: No
  Sender: FDA-Public Use
  Company Number: US-NOVOPROD-449988

PATIENT
  Age: 48 Year
  Sex: Female

DRUGS (5)
  1. VICTOZA [Suspect]
     Active Substance: LIRAGLUTIDE
     Indication: OFF LABEL USE
  2. VICTOZA [Suspect]
     Active Substance: LIRAGLUTIDE
     Indication: METABOLIC SYNDROME
     Dosage: UNK
     Route: 058
  3. SAXENDA [Suspect]
     Active Substance: LIRAGLUTIDE
     Indication: METABOLIC SYNDROME
     Dosage: 1.8 MG, QD
     Route: 058
  4. SAXENDA [Suspect]
     Active Substance: LIRAGLUTIDE
     Dosage: 1.8 MG, UNK
     Route: 058
     Dates: start: 20150517
  5. SAXENDA [Suspect]
     Active Substance: LIRAGLUTIDE
     Indication: OFF LABEL USE
     Dosage: 2.4 MG, QD
     Route: 058
     Dates: start: 201505, end: 20150516

REACTIONS (2)
  - Menstruation irregular [Recovering/Resolving]
  - Off label use [Not Recovered/Not Resolved]

NARRATIVE: CASE EVENT DATE: 201505
